FAERS Safety Report 8880546 (Version 1)
Quarter: 2012Q4

REPORT INFORMATION
  Report Type: 
  Country: CZ (occurrence: CZ)
  Receive Date: 20121101
  Receipt Date: 20121101
  Transmission Date: 20130627
  Serious: Yes (Hospitalization)
  Sender: FDA-Public Use
  Company Number: CZ-PAR PHARMACEUTICAL, INC-2012SCPR004692

PATIENT

DRUGS (5)
  1. DOXYCYCLINE [Suspect]
     Indication: PRODUCT USED FOR UNKNOWN INDICATION
     Dosage: UNK, Unknown
     Route: 065
  2. AMIODARONE [Suspect]
     Indication: PRODUCT USED FOR UNKNOWN INDICATION
     Dosage: 200 mg, 5 times per week
     Route: 048
  3. AMIODARONE [Suspect]
     Dosage: UNK, Unknown
  4. AMIODARONE [Suspect]
     Dosage: UNK, Unknown
     Route: 048
  5. ATORVASTATIN [Suspect]
     Indication: PRODUCT USED FOR UNKNOWN INDICATION
     Dosage: UNK, Unknown
     Route: 065

REACTIONS (1)
  - Liver disorder [Recovering/Resolving]
